FAERS Safety Report 10024312 (Version 1)
Quarter: 2014Q1

REPORT INFORMATION
  Report Type: Spontaneous
  Country: JP (occurrence: None)
  Receive Date: 20140130
  Receipt Date: 20140130
  Transmission Date: 20141002
  Serious: Yes (Death)
  Sender: FDA-Public Use
  Company Number: 2013P1002427

PATIENT
  Age: 8 Year
  Sex: Female
  Weight: 21.8 kg

DRUGS (10)
  1. BUPHENYL (SODIUM PHENYLBUTYRATE) POWDER [Suspect]
     Indication: AMINO ACID METABOLISM DISORDER
     Route: 048
     Dates: start: 20130128, end: 20130208
  2. SODIUM BENZOATE [Concomitant]
  3. ARGININE [Concomitant]
  4. LACTULOSE [Concomitant]
  5. MANNITOL [Concomitant]
  6. DEPAKENE [Concomitant]
  7. L-CARTIN [Concomitant]
  8. VITAMEDIN [Concomitant]
  9. CINAL [Concomitant]
  10. BIOTIN [Concomitant]

REACTIONS (3)
  - Cerebral haemorrhage [None]
  - Condition aggravated [None]
  - Amino acid metabolism disorder [None]
